FAERS Safety Report 7574296-1 (Version None)
Quarter: 2011Q2

REPORT INFORMATION
  Report Type: 
  Country: None (occurrence: None)
  Receive Date: 20110627
  Receipt Date: 20110616
  Transmission Date: 20111010
  Serious: Yes (Other)
  Sender: FDA-Public Use
  Company Number: US-ROCHE-784808

PATIENT
  Sex: Male
  Weight: 90.7 kg

DRUGS (4)
  1. PROZAC [Concomitant]
  2. KLONOPIN [Suspect]
     Indication: OBSESSIVE-COMPULSIVE DISORDER
     Route: 048
  3. ABILIFY [Concomitant]
  4. NEURONTIN [Concomitant]

REACTIONS (5)
  - ROAD TRAFFIC ACCIDENT [None]
  - MALAISE [None]
  - MENTAL DISORDER [None]
  - WITHDRAWAL SYNDROME [None]
  - VISION BLURRED [None]
